FAERS Safety Report 13608742 (Version 1)
Quarter: 2017Q2

REPORT INFORMATION
  Report Type: Spontaneous
  Country: US (occurrence: US)
  Receive Date: 20170602
  Receipt Date: 20170602
  Transmission Date: 20170830
  Serious: Yes (Other)
  Sender: FDA-Public Use
  Company Number: US-PFIZER INC-2017243005

PATIENT
  Age: 26 Year
  Sex: Female
  Weight: 54 kg

DRUGS (1)
  1. XANAX [Suspect]
     Active Substance: ALPRAZOLAM
     Indication: DETOXIFICATION
     Dosage: UNK
     Dates: start: 201705

REACTIONS (2)
  - Intentional product misuse [Unknown]
  - Paralysis [Recovered/Resolved]

NARRATIVE: CASE EVENT DATE: 201705
